FAERS Safety Report 7968298-0 (Version None)
Quarter: 2011Q4

REPORT INFORMATION
  Report Type: 
  Country: None (occurrence: None)
  Receive Date: 20111209
  Receipt Date: 20111207
  Transmission Date: 20120403
  Serious: Yes (Death, Hospitalization, Other)
  Sender: FDA-Public Use
  Company Number: PHHY2010TW52919

PATIENT
  Sex: Male

DRUGS (2)
  1. GLEEVEC [Suspect]
     Indication: GASTROINTESTINAL STROMAL TUMOUR
     Dosage: 400 MG, UNK
     Route: 048
     Dates: start: 20100122
  2. GLEEVEC [Suspect]
     Dosage: 600 MG, UNK
     Route: 048

REACTIONS (18)
  - VOMITING [None]
  - FLATULENCE [None]
  - NEOPLASM PROGRESSION [None]
  - RED BLOOD CELL COUNT DECREASED [None]
  - DECREASED APPETITE [None]
  - WEIGHT DECREASED [None]
  - DIARRHOEA [None]
  - ABDOMINAL PAIN [None]
  - OEDEMA [None]
  - SEPSIS [None]
  - HEAT STROKE [None]
  - RENAL FAILURE [None]
  - SYNCOPE [None]
  - COLD SWEAT [None]
  - NEOPLASM MALIGNANT [None]
  - WHITE BLOOD CELL COUNT DECREASED [None]
  - HYPOGEUSIA [None]
  - RASH [None]
